FAERS Safety Report 4986487-4 (Version None)
Quarter: 2006Q2

REPORT INFORMATION
  Report Type: 
  Country: None (occurrence: None)
  Receive Date: 20060424
  Receipt Date: 20060411
  Transmission Date: 20061013
  Serious: Yes (Hospitalization)
  Sender: FDA-Public Use
  Company Number: AZAUS200600108

PATIENT
  Age: 60 Year
  Sex: Male
  Weight: 72.3 kg

DRUGS (7)
  1. AZACITIDINE (AZACITIDINE) (INJECTION) [Suspect]
     Indication: MYELODYSPLASTIC SYNDROME
     Dosage: 30 MG/M2 (DAYS 1-10, EVERY 28 DAYS), SUBCUTANEOUS
     Route: 058
     Dates: start: 20051017, end: 20051024
  2. MS-275 (INVESTIGATIONAL HISTONE DEACETYLASE INHIBITOR) (INVESTIGATIONA [Suspect]
     Indication: MYELODYSPLASTIC SYNDROME
     Dosage: 4 MG/M2 (DAYS 3 AND 10, EVERY 28 DAYS), ORAL
     Route: 048
     Dates: start: 20051019, end: 20051019
  3. AMICAR [Concomitant]
  4. VALACYCLOVIR (VALACICLOVIR) [Concomitant]
  5. LASIX [Concomitant]
  6. AUGMENTIN (AMOXI-CLAVULANICO) [Concomitant]
  7. ONDANSETRON (ONDANSETRON (ONDANSETRON) [Concomitant]

REACTIONS (3)
  - NEUTROPENIA [None]
  - OEDEMA PERIPHERAL [None]
  - PERICARDIAL EFFUSION [None]
